FAERS Safety Report 17789068 (Version 1)
Quarter: 2020Q2

REPORT INFORMATION
  Report Type: Spontaneous
  Country: US (occurrence: US)
  Receive Date: 20200515
  Receipt Date: 20200515
  Transmission Date: 20200714
  Serious: No
  Sender: FDA-Public Use
  Company Number: US-009507513-2005USA004216

PATIENT
  Age: 54 Year
  Sex: Female

DRUGS (9)
  1. KEYTRUDA [Suspect]
     Active Substance: PEMBROLIZUMAB
     Dosage: UNK
  2. LENVATINIB MESYLATE [Suspect]
     Active Substance: LENVATINIB MESYLATE
     Dosage: UNK
  3. CLARITIN [Concomitant]
     Active Substance: LORATADINE
     Dosage: UNK
  4. COLACE [Concomitant]
     Active Substance: DOCUSATE SODIUM
     Dosage: UNK
  5. PROCHLORPERAZINE. [Concomitant]
     Active Substance: PROCHLORPERAZINE
     Dosage: UNK
  6. EMLA [Concomitant]
     Active Substance: LIDOCAINE\PRILOCAINE
     Dosage: UNK
  7. NINLARO [Suspect]
     Active Substance: IXAZOMIB CITRATE
     Indication: ENDOMETRIAL CANCER
     Dosage: 20 MILLIGRAM, QD
     Route: 048
  8. VITAMIN D (UNSPECIFIED) [Concomitant]
     Active Substance: VITAMIN D NOS
     Dosage: UNK
  9. ONDANSETRON [Concomitant]
     Active Substance: ONDANSETRON
     Dosage: UNK

REACTIONS (8)
  - Lip pain [Unknown]
  - Fatigue [Unknown]
  - Rash [Recovering/Resolving]
  - Chapped lips [Unknown]
  - Oral mucosal roughening [Unknown]
  - Rash erythematous [Recovering/Resolving]
  - Pyrexia [Recovering/Resolving]
  - Feeling hot [Recovering/Resolving]

NARRATIVE: CASE EVENT DATE: 2020
